FAERS Safety Report 6447552-8 (Version None)
Quarter: 2009Q4

REPORT INFORMATION
  Report Type: 
  Country: None (occurrence: None)
  Receive Date: 20091119
  Receipt Date: 20090623
  Transmission Date: 20100525
  Serious: Yes (Life-Threatening, Hospitalization, Other)
  Sender: FDA-Public Use
  Company Number: US-AMGEN-COG346581

PATIENT
  Sex: Female
  Weight: 64 kg

DRUGS (11)
  1. ENBREL [Suspect]
     Indication: RHEUMATOID ARTHRITIS
     Route: 058
     Dates: start: 20041002, end: 20090501
  2. METHOTREXATE [Suspect]
     Dates: start: 19900101
  3. FOLIC ACID [Concomitant]
  4. IBUPROFEN [Concomitant]
  5. ZANTAC [Concomitant]
  6. CALCIUM [Concomitant]
  7. MELATONIN [Concomitant]
  8. CITRUCEL [Concomitant]
  9. AMBIEN [Concomitant]
  10. ZOFRAN [Concomitant]
  11. PHENERGAN HCL [Concomitant]

REACTIONS (2)
  - DIFFUSE LARGE B-CELL LYMPHOMA [None]
  - DIVERTICULITIS [None]
